FAERS Safety Report 22108622 (Version 1)
Quarter: 2023Q1

REPORT INFORMATION
  Report Type: Spontaneous
  Country: US (occurrence: None)
  Receive Date: 20230316
  Receipt Date: 20230316
  Transmission Date: 20230417
  Serious: No
  Sender: FDA-Public Use
  Company Number: None

PATIENT
  Age: 69 Year
  Sex: Female
  Weight: 97.98 kg

DRUGS (23)
  1. CAPECITABINE [Suspect]
     Active Substance: CAPECITABINE
     Indication: Breast cancer female
     Dosage: 2500MG TWICE DAILY ORAL?
     Route: 048
     Dates: start: 202204, end: 20230316
  2. ACYCLOVIR [Concomitant]
     Active Substance: ACYCLOVIR
  3. AMLODIPINE [Concomitant]
     Active Substance: AMLODIPINE BESYLATE
  4. AMLODIPINE [Concomitant]
     Active Substance: AMLODIPINE BESYLATE
  5. ATIVAN [Concomitant]
     Active Substance: LORAZEPAM
  6. BENADRYL [Concomitant]
     Active Substance: DIPHENHYDRAMINE HYDROCHLORIDE
  7. CALCIUM [Concomitant]
     Active Substance: CALCIUM
  8. COLACE [Concomitant]
     Active Substance: DOCUSATE SODIUM
  9. DICYCLOMINE [Concomitant]
     Active Substance: DICYCLOMINE HYDROCHLORIDE
  10. MAGNESIUM [Concomitant]
     Active Substance: MAGNESIUM
  11. MAGNESIUM [Concomitant]
     Active Substance: MAGNESIUM
  12. METAMUCIL [Concomitant]
     Active Substance: PLANTAGO SEED
  13. METHOCARBAMOL [Concomitant]
     Active Substance: METHOCARBAMOL
  14. MIRALAX [Concomitant]
     Active Substance: POLYETHYLENE GLYCOL 3350
  15. MIRALAX [Concomitant]
     Active Substance: POLYETHYLENE GLYCOL 3350
  16. MIRTAZAPINE [Concomitant]
     Active Substance: MIRTAZAPINE
  17. MORPHINE [Concomitant]
     Active Substance: MORPHINE
  18. NEURONTIN [Concomitant]
     Active Substance: GABAPENTIN
  19. ONDANSETRON [Concomitant]
     Active Substance: ONDANSETRON
  20. PAROXETINE [Concomitant]
     Active Substance: PAROXETINE
  21. PROCHLORPERAZINE [Concomitant]
     Active Substance: PROCHLORPERAZINE
  22. PROTONIX [Concomitant]
     Active Substance: PANTOPRAZOLE SODIUM
  23. VITAMIN D [Concomitant]
     Active Substance: VITAMIN D NOS

REACTIONS (2)
  - Disease progression [None]
  - Breast cancer female [None]
